FAERS Safety Report 5022523-7 (Version None)
Quarter: 2006Q2

REPORT INFORMATION
  Report Type: 
  Country: None (occurrence: None)
  Receive Date: 20060605
  Receipt Date: 20060523
  Transmission Date: 20061013
  Serious: Yes (Disabling)
  Sender: FDA-Public Use
  Company Number: 2006062326

PATIENT
  Age: 54 Year
  Sex: Female
  Weight: 60 kg

DRUGS (9)
  1. AZITHROMYCIN [Suspect]
     Indication: BRONCHITIS
     Dosage: 500 MG (1 IN 1 D), ORAL
     Route: 048
     Dates: start: 20060324, end: 20060326
  2. LOSARTAN POTASSIUM [Concomitant]
  3. NORVASC [Concomitant]
  4. ZYRTEC [Concomitant]
  5. ONON (PRANLUKAST) [Concomitant]
  6. BLESIN (DICLOFENAC SODIUM) [Concomitant]
  7. FLOMOX (CEFCAPENE PIVOXIL HYDROCHLORIDE) [Concomitant]
  8. MUCODYNE (CARBOCISTEINE) [Concomitant]
  9. CELESTAMINE TAB [Concomitant]

REACTIONS (3)
  - ACUTE SINUSITIS [None]
  - AGEUSIA [None]
  - ANOSMIA [None]
